FAERS Safety Report 16203698 (Version 1)
Quarter: 2019Q2

REPORT INFORMATION
  Report Type: Spontaneous
  Country: ES (occurrence: ES)
  Receive Date: 20190416
  Receipt Date: 20190416
  Transmission Date: 20190711
  Serious: Yes (Hospitalization)
  Sender: FDA-Public Use
  Company Number: PHHY2019ES082316

PATIENT
  Age: 66 Year
  Sex: Male

DRUGS (4)
  1. LORATADINA [Concomitant]
     Active Substance: LORATADINE
     Indication: CATARRH
     Dosage: UNK
     Route: 048
     Dates: start: 20190127, end: 20190129
  2. AZITROMICINA [Suspect]
     Active Substance: AZITHROMYCIN DIHYDRATE
     Indication: CATARRH
     Dosage: 1 DF, QD
     Route: 048
     Dates: start: 20190201, end: 20190203
  3. PAZITAL [Concomitant]
     Active Substance: ACETAMINOPHEN\TRAMADOL HYDROCHLORIDE
     Indication: PAIN
     Dosage: UNK
     Route: 048
     Dates: start: 20190204, end: 20190208
  4. ALGIDOL [Concomitant]
     Active Substance: ACETAMINOPHEN\ASCORBIC ACID\CODEINE
     Indication: CATARRH
     Dosage: 1 DF, Q8H
     Route: 048
     Dates: start: 20190121, end: 20190131

REACTIONS (3)
  - Hepatitis [Recovered/Resolved]
  - Hyperbilirubinaemia [Recovered/Resolved]
  - Coagulopathy [Recovered/Resolved]

NARRATIVE: CASE EVENT DATE: 20190209
